FAERS Safety Report 15686396 (Version 1)
Quarter: 2018Q4

REPORT INFORMATION
  Report Type: Spontaneous
  Country: US (occurrence: US)
  Receive Date: 20181204
  Receipt Date: 20181204
  Transmission Date: 20190205
  Serious: No
  Sender: FDA-Public Use
  Company Number: US-IRONWOOD PHARMACEUTICALS, INC.-IRWD2018003066

PATIENT

DRUGS (1)
  1. DUZALLO [Suspect]
     Active Substance: ALLOPURINOL\LESINURAD
     Indication: GOUT
     Dosage: UNK
     Route: 065
     Dates: start: 2018, end: 2018

REACTIONS (4)
  - Muscle disorder [Not Recovered/Not Resolved]
  - Feeling abnormal [Not Recovered/Not Resolved]
  - Pain [Not Recovered/Not Resolved]
  - General physical condition abnormal [Not Recovered/Not Resolved]
